FAERS Safety Report 7183298-9 (Version None)
Quarter: 2010Q4

REPORT INFORMATION
  Report Type: 
  Country: None (occurrence: None)
  Receive Date: 20101222
  Receipt Date: 20100722
  Transmission Date: 20110411
  Serious: No
  Sender: FDA-Public Use
  Company Number: A0871904A

PATIENT
  Age: 32 Year
  Sex: Female

DRUGS (2)
  1. FLONASE [Suspect]
     Indication: ILL-DEFINED DISORDER
     Dosage: 2SPR PER DAY
     Route: 045
     Dates: start: 20100721
  2. LEVOTHYROXINE [Concomitant]

REACTIONS (1)
  - VISION BLURRED [None]
